FAERS Safety Report 8759281 (Version 1)
Quarter: 2012Q4

REPORT INFORMATION
  Report Type: 
  Country: CA (occurrence: CA)
  Receive Date: 20120829
  Receipt Date: 20120829
  Transmission Date: 20130627
  Serious: Yes (Other)
  Sender: FDA-Public Use
  Company Number: CA-COVIDIEN/TYCO HEALTHCARE/MALLINCKRODT-T201203247

PATIENT
  Age: 50 Year
  Sex: Female

DRUGS (1)
  1. FENTANYL TRANSDERMAL SYSTEM [Suspect]
     Indication: PAIN
     Dosage: UNK

REACTIONS (3)
  - Alveolar proteinosis [Recovering/Resolving]
  - Intentional drug misuse [Recovered/Resolved]
  - Incorrect route of drug administration [Recovered/Resolved]
